FAERS Safety Report 5244451-4 (Version None)
Quarter: 2007Q1

REPORT INFORMATION
  Report Type: 
  Country: None (occurrence: None)
  Receive Date: 20070222
  Receipt Date: 20070221
  Transmission Date: 20070707
  Serious: Yes (Other)
  Sender: FDA-Public Use
  Company Number: US-GLAXOSMITHKLINE-A0640205A

PATIENT
  Sex: Female

DRUGS (1)
  1. CITRUCEL CAPLETS [Suspect]
     Indication: DRUG USE FOR UNKNOWN INDICATION

REACTIONS (2)
  - FAECES HARD [None]
  - RECTAL HAEMORRHAGE [None]
